FAERS Safety Report 8843264 (Version 2)
Quarter: 2012Q4

REPORT INFORMATION
  Report Type: 
  Country: EC (occurrence: EC)
  Receive Date: 20121016
  Receipt Date: 20121217
  Transmission Date: 20130627
  Serious: Yes (Other)
  Sender: FDA-Public Use
  Company Number: PHHY2012EC067067

PATIENT
  Sex: Female

DRUGS (3)
  1. ACLASTA [Suspect]
     Indication: OSTEOPOROSIS
     Dosage: 5 mg/100ml STAT
     Route: 042
     Dates: start: 20091215
  2. ACLASTA [Suspect]
     Dosage: 5 mg/100ml STAT
     Route: 042
     Dates: start: 20111215
  3. LEVOTHYROXINE [Concomitant]

REACTIONS (5)
  - Thyroid disorder [Not Recovered/Not Resolved]
  - Goitre [Unknown]
  - Back pain [Not Recovered/Not Resolved]
  - Arthralgia [Not Recovered/Not Resolved]
  - Drug ineffective [Not Recovered/Not Resolved]
